FAERS Safety Report 9760445 (Version 3)
Quarter: 2015Q3

REPORT INFORMATION
  Report Type: Spontaneous
  Country: US (occurrence: US)
  Receive Date: 20131216
  Receipt Date: 20150806
  Transmission Date: 20151125
  Serious: No
  Sender: FDA-Public Use
  Company Number: US-GILEAD-2010-0028938

PATIENT
  Age: 71 Year
  Sex: Female
  Weight: 63.5 kg

DRUGS (10)
  1. LETAIRIS [Suspect]
     Active Substance: AMBRISENTAN
     Indication: PULMONARY ARTERIAL HYPERTENSION
     Route: 048
     Dates: start: 20100419
  2. MEFTORMIN HCL ER [Concomitant]
  3. CALTRATE [Concomitant]
     Active Substance: CALCIUM CARBONATE
  4. NEXIUM [Concomitant]
     Active Substance: ESOMEPRAZOLE MAGNESIUM
  5. OMEGA 3 [Concomitant]
     Active Substance: OMEGA-3 FATTY ACIDS
  6. ASPIRIN. [Concomitant]
     Active Substance: ASPIRIN
  7. PRAVASTATIN [Concomitant]
     Active Substance: PRAVASTATIN\PRAVASTATIN SODIUM
  8. TENORMIN [Concomitant]
     Active Substance: ATENOLOL
  9. AMLODIPINE BESYLATE AND BENAZEPRIL HCL [Concomitant]
     Active Substance: AMLODIPINE BESYLATE\BENAZEPRIL HYDROCHLORIDE
  10. CHLORDIAZEPOXIDE-CLIDINIU [Concomitant]

REACTIONS (4)
  - Poor quality sleep [Recovered/Resolved]
  - Palpitations [Recovered/Resolved]
  - Nasal congestion [Not Recovered/Not Resolved]
  - Headache [Recovered/Resolved]
